FAERS Safety Report 7832287-7 (Version None)
Quarter: 2011Q4

REPORT INFORMATION
  Report Type: 
  Country: None (occurrence: None)
  Receive Date: 20111022
  Receipt Date: 20111010
  Transmission Date: 20120403
  Serious: Yes (Hospitalization, Other)
  Sender: FDA-Public Use
  Company Number: US-BAYER-2011-006232

PATIENT
  Age: 32 Year
  Sex: Female
  Weight: 90.6 kg

DRUGS (4)
  1. YAZ [Suspect]
     Indication: CONTRACEPTION
     Dosage: UNK
     Dates: start: 20070401, end: 20090101
  2. YAZ [Suspect]
     Indication: PREMENSTRUAL SYNDROME
  3. YAZ [Suspect]
  4. WELLBUTRIN [Concomitant]
     Dosage: DAILY DOSE 350 MG
     Route: 048
     Dates: start: 20050101, end: 20090101

REACTIONS (8)
  - CHOLECYSTITIS CHRONIC [None]
  - ANXIETY [None]
  - GALLBLADDER DISORDER [None]
  - EMOTIONAL DISTRESS [None]
  - DYSPEPSIA [None]
  - PYREXIA [None]
  - ABDOMINAL PAIN [None]
  - PAIN [None]
